FAERS Safety Report 7824765-1 (Version None)
Quarter: 2011Q4

REPORT INFORMATION
  Report Type: 
  Country: None (occurrence: None)
  Receive Date: 20111019
  Receipt Date: 20101206
  Transmission Date: 20120403
  Serious: No
  Sender: FDA-Public Use
  Company Number: US-BRISTOL-MYERS SQUIBB COMPANY-15424179

PATIENT
  Age: 67 Year
  Sex: Female

DRUGS (4)
  1. HYDROCODONE WITH TYLENOL [Concomitant]
  2. CLARINEX [Concomitant]
  3. AVALIDE [Suspect]
  4. LEVOXYL [Concomitant]

REACTIONS (6)
  - MICTURITION DISORDER [None]
  - VOMITING [None]
  - FATIGUE [None]
  - DIARRHOEA [None]
  - NAUSEA [None]
  - FLATULENCE [None]
